FAERS Safety Report 5219613-2 (Version None)
Quarter: 2007Q1

REPORT INFORMATION
  Report Type: 
  Country: None (occurrence: None)
  Receive Date: 20070124
  Receipt Date: 20070124
  Transmission Date: 20070707
  Serious: Yes (Hospitalization)
  Sender: FDA-Public Use
  Company Number: None

PATIENT
  Age: 59 Year
  Sex: Male
  Weight: 66.2252 kg

DRUGS (23)
  1. THALIDOMIDE [Suspect]
     Indication: MULTIPLE MYELOMA
     Dosage: 50MG, DAILY, PO
     Route: 048
     Dates: start: 20070112
  2. DOXIL [Suspect]
     Indication: MULTIPLE MYELOMA
     Dosage: 40MG/M2, Q28DAYS, IV
     Route: 042
     Dates: start: 20070112
  3. ACETAMINOPHEN [Concomitant]
  4. ACYCLOVIR [Concomitant]
  5. ALLOPRUINOL [Concomitant]
  6. AMOXILLIN [Concomitant]
  7. BACLOFEN [Concomitant]
  8. CIPRO [Concomitant]
  9. CLONADINE [Concomitant]
  10. DOCUSATE [Concomitant]
  11. EPOITIN ALPHA [Concomitant]
  12. FELODIPINE [Concomitant]
  13. FERROUS SULFATE TAB [Concomitant]
  14. GLIPIZIDE [Concomitant]
  15. HYDRALAZINE HCL [Concomitant]
  16. METAPROLOL [Concomitant]
  17. OMEPRAZOLE [Concomitant]
  18. COMPAZINE [Concomitant]
  19. SENNOSIDES [Concomitant]
  20. SIMVASTATIN [Concomitant]
  21. TEMAZEPAM [Concomitant]
  22. TERAZOSIN [Concomitant]
  23. WARFARIN SODIUM [Concomitant]

REACTIONS (3)
  - BLOOD PRESSURE INCREASED [None]
  - NAUSEA [None]
  - VOMITING [None]
